FAERS Safety Report 5776368-0 (Version None)
Quarter: 2008Q2

REPORT INFORMATION
  Report Type: 
  Country: None (occurrence: None)
  Receive Date: 20080617
  Receipt Date: 20080617
  Transmission Date: 20081010
  Serious: No
  Sender: FDA-Public Use
  Company Number: None

PATIENT
  Sex: Female

DRUGS (2)
  1. ALPRAZOLAM [Suspect]
     Indication: GENERALISED ANXIETY DISORDER
     Dosage: 0.25 MG BID PRN ORAL
     Route: 048
  2. ALPRAZOLAM [Suspect]
     Indication: PANIC DISORDER
     Dosage: 0.25 MG BID PRN ORAL
     Route: 048

REACTIONS (1)
  - THERAPEUTIC RESPONSE UNEXPECTED WITH DRUG SUBSTITUTION [None]
